FAERS Safety Report 12727669 (Version 1)
Quarter: 2016Q3

REPORT INFORMATION
  Report Type: Spontaneous
  Country: US (occurrence: US)
  Receive Date: 20160909
  Receipt Date: 20160909
  Transmission Date: 20161109
  Serious: No
  Sender: FDA-Public Use
  Company Number: US-PFIZER INC-2016423321

PATIENT
  Age: 87 Year
  Sex: Male
  Weight: 71.4 kg

DRUGS (12)
  1. EPHEDRINE. [Concomitant]
     Active Substance: EPHEDRINE
     Indication: BLOOD PRESSURE MANAGEMENT
     Dosage: 10 MG, UNK
     Route: 042
     Dates: start: 20160825
  2. CEFAZOLIN [Concomitant]
     Active Substance: CEFAZOLIN
     Indication: ANTIBIOTIC PROPHYLAXIS
     Dosage: 2 G, UNK
     Route: 042
     Dates: start: 20160825
  3. LACTATED RINGERS [Concomitant]
     Active Substance: CALCIUM CHLORIDE\POTASSIUM CHLORIDE\SODIUM CHLORIDE\SODIUM LACTATE
     Indication: PROPHYLAXIS AGAINST DEHYDRATION
     Dosage: 1 L, UNK
     Route: 042
     Dates: start: 20160825
  4. FENTANYL. [Concomitant]
     Active Substance: FENTANYL
     Indication: ANAESTHESIA
     Dosage: 10 UG, UNK
     Route: 037
     Dates: start: 20160825
  5. EPHEDRINE. [Concomitant]
     Active Substance: EPHEDRINE
     Dosage: UNK
  6. ONDANSETRON [Concomitant]
     Active Substance: ONDANSETRON
     Indication: PROPHYLAXIS OF NAUSEA AND VOMITING
     Dosage: 4 MG, UNK
     Route: 042
     Dates: start: 20160825
  7. BUPIVACAINE HCL [Suspect]
     Active Substance: BUPIVACAINE HYDROCHLORIDE
     Indication: SPINAL ANAESTHESIA
     Dosage: 1.4 ML, UNK
     Route: 037
     Dates: start: 20160825
  8. PROPOFOL. [Concomitant]
     Active Substance: PROPOFOL
     Indication: ANAESTHESIA
     Dosage: 10 MG/ML, ( TOTAL 75 MG/7.5 ML)
     Route: 041
     Dates: start: 20160825, end: 20160825
  9. ROPIVACAINE [Concomitant]
     Active Substance: ROPIVACAINE
     Indication: NERVE BLOCK
     Dosage: 30 ML (0.375%)
     Route: 042
     Dates: start: 20160825
  10. TRANEXAMIC ACID. [Concomitant]
     Active Substance: TRANEXAMIC ACID
     Indication: POST PROCEDURAL HAEMORRHAGE
     Dosage: 1 G, UNK
     Route: 041
     Dates: start: 20160825
  11. TRANEXAMIC ACID. [Concomitant]
     Active Substance: TRANEXAMIC ACID
     Dosage: 1 G, UNK
     Route: 041
     Dates: start: 20160825
  12. LACTATED RINGERS [Concomitant]
     Active Substance: CALCIUM CHLORIDE\POTASSIUM CHLORIDE\SODIUM CHLORIDE\SODIUM LACTATE
     Indication: BLOOD PRESSURE MANAGEMENT
     Dosage: 1 L, UNK
     Route: 042
     Dates: start: 20160825

REACTIONS (1)
  - Drug ineffective [Recovered/Resolved]

NARRATIVE: CASE EVENT DATE: 20160825
